FAERS Safety Report 5680911-X (Version None)
Quarter: 2008Q1

REPORT INFORMATION
  Report Type: 
  Country: None (occurrence: None)
  Receive Date: 20080325
  Receipt Date: 20080314
  Transmission Date: 20080703
  Serious: Yes (Death)
  Sender: FDA-Public Use
  Company Number: 2008-0002

PATIENT
  Age: 35 Year
  Sex: Male

DRUGS (2)
  1. CODEINE SUL TAB [Suspect]
  2. CITALOPRAM HYDROBROMIDE [Suspect]

REACTIONS (2)
  - FALL [None]
  - OVERDOSE [None]
